FAERS Safety Report 13343285 (Version 2)
Quarter: 2017Q1

REPORT INFORMATION
  Report Type: Spontaneous
  Country: AR (occurrence: AR)
  Receive Date: 20170316
  Receipt Date: 20170328
  Transmission Date: 20170428
  Serious: Yes (Hospitalization, Other)
  Sender: FDA-Public Use
  Company Number: AR-PFIZER INC-2017110435

PATIENT
  Age: 73 Year
  Sex: Female

DRUGS (3)
  1. SILDENAFIL CITRATE. [Suspect]
     Active Substance: SILDENAFIL CITRATE
     Indication: SYSTEMIC SCLERODERMA
     Dosage: UNK
  2. DILTIAZEM HCL [Suspect]
     Active Substance: DILTIAZEM HYDROCHLORIDE
     Indication: SYSTEMIC SCLERODERMA
     Dosage: UNK
  3. HIDROXICLOROQUINA [Suspect]
     Active Substance: HYDROXYCHLOROQUINE
     Indication: SYSTEMIC SCLERODERMA
     Dosage: UNK

REACTIONS (12)
  - Anuria [Unknown]
  - Respiratory disorder [Unknown]
  - Microangiopathic haemolytic anaemia [Unknown]
  - Generalised oedema [Unknown]
  - Pleural effusion [Unknown]
  - Vomiting [Unknown]
  - Headache [Unknown]
  - Renal failure [Unknown]
  - Oliguria [Unknown]
  - Dizziness [Unknown]
  - Blood pressure increased [Unknown]
  - Cardiac disorder [Unknown]
